FAERS Safety Report 15250838 (Version 1)
Quarter: 2018Q3

REPORT INFORMATION
  Report Type: Spontaneous
  Country: US (occurrence: US)
  Receive Date: 20180716
  Receipt Date: 20180716
  Transmission Date: 20181010
  Serious: No
  Sender: FDA-Public Use
  Company Number: None

PATIENT
  Sex: Female

DRUGS (5)
  1. PRAVASTATIN. [Concomitant]
     Active Substance: PRAVASTATIN
  2. VITAMIN D [Concomitant]
     Active Substance: CHOLECALCIFEROL
  3. OCALIVA [Suspect]
     Active Substance: OBETICHOLIC ACID
     Indication: PRIMARY BILIARY CHOLANGITIS
     Route: 048
     Dates: start: 20180618
  4. VITAMIN A [Concomitant]
     Active Substance: VITAMIN A
  5. URSODIOL. [Concomitant]
     Active Substance: URSODIOL

REACTIONS (3)
  - Abdominal pain upper [None]
  - Diarrhoea [None]
  - Faeces soft [None]
